FAERS Safety Report 24802975 (Version 1)
Quarter: 2025Q1

REPORT INFORMATION
  Report Type: Spontaneous
  Country: DE (occurrence: DE)
  Receive Date: 20250103
  Receipt Date: 20250103
  Transmission Date: 20250409
  Serious: Yes (Hospitalization, Other)
  Sender: CELLTRION
  Company Number: DE-CELLTRION INC.-2023DE000498

PATIENT

DRUGS (6)
  1. ADALIMUMAB [Suspect]
     Active Substance: ADALIMUMAB
     Indication: Juvenile psoriatic arthritis
     Dosage: 40 MILLIGRAM, EVERY 2 WEEKS
     Route: 058
     Dates: start: 20220221
  2. CELEBREX [Concomitant]
     Active Substance: CELECOXIB
     Indication: Juvenile psoriatic arthritis
     Dates: start: 20220110
  3. CETIRIZINE HYDROCHLORIDE [Concomitant]
     Active Substance: CETIRIZINE HYDROCHLORIDE
     Indication: Prophylaxis
     Dates: start: 20220309
  4. IXEKIZUMAB [Concomitant]
     Active Substance: IXEKIZUMAB
     Indication: Juvenile idiopathic arthritis
  5. ALBUTEROL [Concomitant]
     Active Substance: ALBUTEROL
     Indication: Prophylaxis
     Dates: start: 20220309, end: 20220613
  6. CHOLECALCIFEROL [Concomitant]
     Active Substance: CHOLECALCIFEROL
     Indication: Prophylaxis
     Dates: start: 202111

REACTIONS (4)
  - Middle ear effusion [Recovered/Resolved]
  - Asthma [Recovered/Resolved]
  - Adverse event [Unknown]
  - Dizziness [Recovered/Resolved]

NARRATIVE: CASE EVENT DATE: 20220301
